FAERS Safety Report 18722426 (Version 8)
Quarter: 2022Q1

REPORT INFORMATION
  Report Type: Report from Study
  Country: KR (occurrence: KR)
  Receive Date: 20210111
  Receipt Date: 20220112
  Transmission Date: 20220423
  Serious: Yes (Other)
  Sender: FDA-Public Use
  Company Number: KR-ABBVIE-21K-090-3718592-00

PATIENT
  Age: 37 Year
  Sex: Male
  Weight: 83 kg

DRUGS (17)
  1. SKYRIZI [Suspect]
     Active Substance: RISANKIZUMAB-RZAA
     Indication: Psoriasis
     Dosage: ONCE
     Route: 058
     Dates: start: 20200908, end: 20200908
  2. SKYRIZI [Suspect]
     Active Substance: RISANKIZUMAB-RZAA
     Dosage: ONCE
     Route: 058
     Dates: start: 20201006, end: 20201006
  3. SKYRIZI [Suspect]
     Active Substance: RISANKIZUMAB-RZAA
     Dosage: ONCE
     Route: 058
     Dates: start: 20210105, end: 20210105
  4. SKYRIZI [Suspect]
     Active Substance: RISANKIZUMAB-RZAA
     Dosage: ONCE
     Route: 058
     Dates: start: 20210406, end: 20210406
  5. SKYRIZI [Suspect]
     Active Substance: RISANKIZUMAB-RZAA
     Dosage: ONCE
     Route: 058
     Dates: start: 20210706, end: 20210706
  6. SKYRIZI [Suspect]
     Active Substance: RISANKIZUMAB-RZAA
     Dosage: ONCE
     Route: 058
     Dates: start: 20211005, end: 20211005
  7. ISONIAZID [Concomitant]
     Active Substance: ISONIAZID
     Indication: Latent tuberculosis
     Dates: start: 20200818, end: 20201006
  8. ISONIAZID [Concomitant]
     Active Substance: ISONIAZID
     Dates: start: 20201021, end: 20210417
  9. PYRIDOXINE SINIL [Concomitant]
     Indication: Latent tuberculosis
     Dates: start: 20200818, end: 20201006
  10. PYRIDOXINE SINIL [Concomitant]
     Dates: start: 20201021, end: 20210417
  11. DAEWOONG URSA B [Concomitant]
     Indication: Antiviral prophylaxis
     Dates: start: 20201006, end: 20210405
  12. DAEWOONG URSA B [Concomitant]
     Indication: Antiviral prophylaxis
  13. DAEWOONG URSA B [Concomitant]
     Indication: Drug-induced liver injury
  14. ENSTILUM [Concomitant]
     Indication: Psoriasis
     Dates: start: 20200317, end: 20210110
  15. BETAMETHASONE DIPROPIONATE\CALCIPOTRIENE HYDRATE [Concomitant]
     Active Substance: BETAMETHASONE DIPROPIONATE\CALCIPOTRIENE HYDRATE
     Indication: Psoriasis
     Dates: start: 20190605
  16. DIETARY SUPPLEMENT\HERBALS\MILK THISTLE [Concomitant]
     Active Substance: DIETARY SUPPLEMENT\HERBALS\MILK THISTLE
     Indication: Liver function test increased
     Dates: start: 20190610, end: 20210405
  17. DIETARY SUPPLEMENT\HERBALS\MILK THISTLE [Concomitant]
     Active Substance: DIETARY SUPPLEMENT\HERBALS\MILK THISTLE
     Indication: Drug-induced liver injury

REACTIONS (1)
  - Drug-induced liver injury [Recovered/Resolved]

NARRATIVE: CASE EVENT DATE: 20201006
